FAERS Safety Report 18014043 (Version 1)
Quarter: 2020Q3

REPORT INFORMATION
  Report Type: Spontaneous
  Country: NL (occurrence: NL)
  Receive Date: 20200713
  Receipt Date: 20200713
  Transmission Date: 20201103
  Serious: Yes (Other)
  Sender: FDA-Public Use
  Company Number: NL-MYLANLABS-2020M1062066

PATIENT
  Age: 63 Year
  Sex: Female

DRUGS (5)
  1. NITROFURANTOIN. [Suspect]
     Active Substance: NITROFURANTOIN
     Indication: CYSTITIS
     Dosage: 50 MILLIGRAM Q6H (4D1T)
     Dates: start: 20200611, end: 20200615
  2. LAMOTRIGINE. [Concomitant]
     Active Substance: LAMOTRIGINE
     Dosage: KAUWTABLET, 100 MG (MILLIGRAM)
  3. FENYTOIN [Concomitant]
     Active Substance: PHENYTOIN
     Dosage: TABLET, 100 MG (MILLIGRAM)
  4. CLOBAZAM. [Concomitant]
     Active Substance: CLOBAZAM
     Dosage: TABLET, 10 MG (MILLIGRAM)
  5. LAMOTRIGINE. [Concomitant]
     Active Substance: LAMOTRIGINE
     Dosage: KAUWTABLET, 200 MG (MILLIGRAM)

REACTIONS (1)
  - Epilepsy [Unknown]

NARRATIVE: CASE EVENT DATE: 20200612
